FAERS Safety Report 9244709 (Version 1)
Quarter: 2013Q2

REPORT INFORMATION
  Report Type: Report from Study
  Country: CO (occurrence: CO)
  Receive Date: 20130422
  Receipt Date: 20130422
  Transmission Date: 20140414
  Serious: Yes (Death)
  Sender: FDA-Public Use
  Company Number: CO-SANOFI-AVENTIS-2013SA039041

PATIENT
  Age: 79 Year
  Sex: Female

DRUGS (2)
  1. INSULIN GLARGINE [Suspect]
     Indication: DIABETES MELLITUS
     Route: 058
     Dates: start: 201207, end: 201303
  2. INSULIN GLULISINE [Suspect]
     Indication: DIABETES MELLITUS
     Route: 058
     Dates: start: 201207, end: 201303

REACTIONS (1)
  - Pneumonia [Fatal]
